FAERS Safety Report 24376054 (Version 1)
Quarter: 2024Q3

REPORT INFORMATION
  Report Type: Spontaneous
  Country: US (occurrence: None)
  Receive Date: 20240927
  Receipt Date: 20240927
  Transmission Date: 20241016
  Serious: Yes (Death)
  Sender: Public
  Company Number: None

PATIENT
  Age: 45 Year
  Sex: Male

DRUGS (8)
  1. BIKTARVY [Suspect]
     Active Substance: BICTEGRAVIR SODIUM\EMTRICITABINE\TENOFOVIR ALAFENAMIDE FUMARATE
     Indication: HIV infection
     Dosage: FREQUENCY : DAILY;?
     Route: 048
     Dates: end: 20240826
  2. POTASSIUM CITRATE 1080 MG [Concomitant]
  3. LANSOPRAZOLE ODT 15MG [Concomitant]
  4. SULFAMETH-TRIMETH 400-80 MG TABLET [Concomitant]
  5. TERAZOSIN 2 MG CAPSULE [Concomitant]
  6. LEVETIRACETAM 500MG [Concomitant]
  7. FLUCONAZOLE [Concomitant]
     Active Substance: FLUCONAZOLE
  8. AZITHROMYCIN 600 MG TABLET [Concomitant]

REACTIONS (1)
  - Death [None]

NARRATIVE: CASE EVENT DATE: 20240826
